FAERS Safety Report 9586561 (Version 1)
Quarter: 2013Q4

REPORT INFORMATION
  Report Type: Spontaneous
  Country: US (occurrence: US)
  Receive Date: 20131003
  Receipt Date: 20131003
  Transmission Date: 20140711
  Serious: Yes (Other)
  Sender: FDA-Public Use
  Company Number: US-ASTELLAS-2013US010245

PATIENT
  Age: 16 Year
  Sex: Male

DRUGS (1)
  1. MYCAMINE [Suspect]
     Indication: CANDIDA INFECTION
     Dosage: UNK
     Dates: start: 201306

REACTIONS (1)
  - Skin mass [Not Recovered/Not Resolved]
